FAERS Safety Report 7446880-7 (Version None)
Quarter: 2011Q2

REPORT INFORMATION
  Report Type: 
  Country: None (occurrence: None)
  Receive Date: 20110429
  Receipt Date: 20110222
  Transmission Date: 20111010
  Serious: No
  Sender: FDA-Public Use
  Company Number: US-ASTRAZENECA-2010SE55451

PATIENT
  Age: 64 Year
  Sex: Female

DRUGS (2)
  1. NEXIUM [Suspect]
     Indication: GASTROOESOPHAGEAL REFLUX DISEASE
     Route: 048
     Dates: start: 20100901
  2. BLOOD PRESSURE MEDICATIONS [Concomitant]

REACTIONS (4)
  - FLATULENCE [None]
  - REGURGITATION [None]
  - DRUG DOSE OMISSION [None]
  - ORAL DISORDER [None]
